FAERS Safety Report 5347886-4 (Version None)
Quarter: 2007Q2

REPORT INFORMATION
  Report Type: 
  Country: None (occurrence: None)
  Receive Date: 20070514
  Receipt Date: 20060918
  Transmission Date: 20071010
  Serious: Yes (Hospitalization)
  Sender: FDA-Public Use
  Company Number: AE-906-315

PATIENT
  Age: 73 Year
  Sex: Female

DRUGS (5)
  1. LIDODERM [Suspect]
     Indication: SPONDYLITIS
     Dosage: 1 INCH STRIP
  2. MOTRIN [Concomitant]
  3. THYROID TAB [Concomitant]
  4. WATER PILLS [Concomitant]
  5. ALLERGY PILLS [Concomitant]

REACTIONS (4)
  - DIZZINESS [None]
  - LARYNGEAL OEDEMA [None]
  - LOSS OF CONSCIOUSNESS [None]
  - TONGUE OEDEMA [None]
